FAERS Safety Report 4369645-1 (Version None)
Quarter: 2004Q2

REPORT INFORMATION
  Report Type: 
  Country: None (occurrence: None)
  Receive Date: 20040528
  Receipt Date: 20040518
  Transmission Date: 20050107
  Serious: No
  Sender: FDA-Public Use
  Company Number: 2004UW10336

PATIENT
  Sex: 0

DRUGS (1)
  1. XYLOCAINE [Suspect]
     Indication: CATARACT OPERATION
     Dosage: 1 ML TP
     Route: 064

REACTIONS (5)
  - CATARACT OPERATION COMPLICATION [None]
  - EYE BURNS [None]
  - INJURY CORNEAL [None]
  - PHARMACEUTICAL PRODUCT COMPLAINT [None]
  - VISION BLURRED [None]
